FAERS Safety Report 8988876 (Version 2)
Quarter: 2013Q1

REPORT INFORMATION
  Report Type: Spontaneous
  Country: US (occurrence: US)
  Receive Date: 20121228
  Receipt Date: 20130214
  Transmission Date: 20140127
  Serious: No
  Sender: FDA-Public Use
  Company Number: US-009507513-1212USA008673

PATIENT
  Sex: 0

DRUGS (1)
  1. DULERA [Suspect]
     Dosage: UNK
     Route: 055

REACTIONS (1)
  - Blood pressure increased [Unknown]
